FAERS Safety Report 16060946 (Version 1)
Quarter: 2019Q1

REPORT INFORMATION
  Report Type: Spontaneous
  Country: US (occurrence: US)
  Receive Date: 20190312
  Receipt Date: 20190312
  Transmission Date: 20190418
  Serious: Yes (Other)
  Sender: FDA-Public Use
  Company Number: US-ROCHE-2259695

PATIENT
  Age: 52 Year
  Sex: Male

DRUGS (7)
  1. ASPIRIN. [Concomitant]
     Active Substance: ASPIRIN
  2. CLOPIDOGREL [Concomitant]
     Active Substance: CLOPIDOGREL BISULFATE
  3. HYDROMORPHONE [Concomitant]
     Active Substance: HYDROMORPHONE
  4. MIRTAZAPINE. [Concomitant]
     Active Substance: MIRTAZAPINE
  5. LEVETIRACETAM. [Concomitant]
     Active Substance: LEVETIRACETAM
  6. VENLAFAXINE [Concomitant]
     Active Substance: VENLAFAXINE HYDROCHLORIDE
  7. ATEZOLIZUMAB. [Suspect]
     Active Substance: ATEZOLIZUMAB
     Indication: TRANSITIONAL CELL CARCINOMA
     Route: 065

REACTIONS (1)
  - Rash maculo-papular [Recovered/Resolved]
